FAERS Safety Report 4704920-X (Version None)
Quarter: 2005Q3

REPORT INFORMATION
  Report Type: 
  Country: None (occurrence: None)
  Receive Date: 20050701
  Receipt Date: 20050628
  Transmission Date: 20060218
  Serious: Yes (Life-Threatening, Hospitalization)
  Sender: FDA-Public Use
  Company Number: PHHO2005PL10203

PATIENT
  Age: 57 Year
  Sex: Female

DRUGS (3)
  1. LETROZOLE [Suspect]
     Indication: BREAST CANCER METASTATIC
     Dosage: 2.5 MG, QD
     Route: 048
     Dates: start: 20050502, end: 20050519
  2. KETONAL [Concomitant]
  3. BONEFOS [Concomitant]

REACTIONS (3)
  - ABDOMINAL PAIN [None]
  - GASTRIC ULCER PERFORATION [None]
  - SURGERY [None]
